FAERS Safety Report 9958843 (Version 1)
Quarter: 2014Q1

REPORT INFORMATION
  Report Type: Report from Study
  Country: US (occurrence: US)
  Receive Date: 20140305
  Receipt Date: 20140305
  Transmission Date: 20141002
  Serious: No
  Sender: FDA-Public Use
  Company Number: US-ABBVIE-13P-163-1102430-00

PATIENT
  Age: 25 Year
  Sex: Female

DRUGS (8)
  1. HUMIRA [Suspect]
     Indication: CROHN^S DISEASE
     Dates: start: 20130202
  2. PENTASA [Concomitant]
     Indication: PRODUCT USED FOR UNKNOWN INDICATION
  3. SYNTHYROID [Concomitant]
     Indication: THYROID DISORDER
     Dosage: 100 MCG DAILY
  4. NUVA RING [Concomitant]
     Indication: CONTRACEPTION
     Dosage: 0.12/0.015 MG
  5. CYTOMEL [Concomitant]
     Indication: THYROID DISORDER
     Dosage: 50 MCG DAILY
  6. CLARITIN [Concomitant]
     Indication: HYPERSENSITIVITY
  7. MULTIVITAMINS [Concomitant]
     Indication: PRODUCT USED FOR UNKNOWN INDICATION
     Dosage: DAILY
  8. SUPPLEMENTS [Concomitant]
     Indication: PRODUCT USED FOR UNKNOWN INDICATION
     Dosage: DAILY

REACTIONS (5)
  - Abdominal distension [Recovering/Resolving]
  - Abdominal discomfort [Recovering/Resolving]
  - Gastrointestinal pain [Recovering/Resolving]
  - Pain [Recovering/Resolving]
  - Back pain [Recovering/Resolving]
